FAERS Safety Report 5122477-9 (Version None)
Quarter: 2006Q4

REPORT INFORMATION
  Report Type: 
  Country: None (occurrence: None)
  Receive Date: 20061004
  Receipt Date: 20060908
  Transmission Date: 20070319
  Serious: Yes (Other)
  Sender: FDA-Public Use
  Company Number: 2006-07-1408

PATIENT
  Age: 49 Year
  Sex: Male

DRUGS (8)
  1. PEG-INTRON [Suspect]
     Indication: HEPATITIS C
     Dosage: 120 MCG;QW;SC
     Route: 058
     Dates: start: 20060708, end: 20060812
  2. RIBAVIRIN [Suspect]
     Indication: HEPATITIS C
     Dosage: 600 MG;QD;PO
     Route: 048
     Dates: start: 20060708, end: 20060812
  3. ACIPHEX [Concomitant]
  4. RYTHMOL [Concomitant]
  5. LISINOPRIL AND HYDROCHLOROTHIAZIDE [Concomitant]
  6. LOVASTATIN [Concomitant]
  7. ATENOLOL [Concomitant]
  8. XANAX [Concomitant]

REACTIONS (19)
  - AMNESIA [None]
  - ANXIETY [None]
  - ARTHRALGIA [None]
  - BLOOD PRESSURE DIASTOLIC INCREASED [None]
  - BONE PAIN [None]
  - CATATONIA [None]
  - DYSARTHRIA [None]
  - DYSPNOEA [None]
  - FACIAL PALSY [None]
  - FAECES PALE [None]
  - FATIGUE [None]
  - HEART RATE INCREASED [None]
  - INSOMNIA [None]
  - MYALGIA [None]
  - PAINFUL DEFAECATION [None]
  - PSYCHOTIC DISORDER [None]
  - SPEECH DISORDER [None]
  - TEMPERATURE INTOLERANCE [None]
  - VOMITING [None]
